FAERS Safety Report 15702059 (Version 4)
Quarter: 2020Q1

REPORT INFORMATION
  Report Type: Report from Study
  Country: None (occurrence: US)
  Receive Date: 20181209
  Receipt Date: 20200321
  Transmission Date: 20200409
  Serious: Yes (Other)
  Sender: FDA-Public Use
  Company Number: US-ABBVIE-18K-163-2545899-00

PATIENT
  Sex: Female

DRUGS (1)
  1. HUMIRA [Suspect]
     Active Substance: ADALIMUMAB
     Indication: CROHN^S DISEASE
     Dosage: CF
     Route: 058

REACTIONS (5)
  - Cardiac valve disease [Recovering/Resolving]
  - Gastrointestinal fistula [Not Recovered/Not Resolved]
  - Scoliosis [Unknown]
  - Drug ineffective [Recovering/Resolving]
  - Dyspnoea [Recovering/Resolving]
